FAERS Safety Report 24056534 (Version 1)
Quarter: 2024Q3

REPORT INFORMATION
  Report Type: Report from Study
  Country: DE (occurrence: DE)
  Receive Date: 20240705
  Receipt Date: 20240705
  Transmission Date: 20241016
  Serious: Yes (Other)
  Sender: BRISTOL MYERS SQUIBB
  Company Number: DE-BRISTOL-MYERS SQUIBB COMPANY-2024-048859

PATIENT
  Age: 73 Year
  Sex: Male

DRUGS (5)
  1. OPDIVO [Suspect]
     Active Substance: NIVOLUMAB
     Indication: Non-small cell lung cancer
     Dosage: ALL 2 WEEKS(Q 14 DAYS)
     Route: 042
     Dates: start: 20230920, end: 20240523
  2. YERVOY [Suspect]
     Active Substance: IPILIMUMAB
     Indication: Non-small cell lung cancer
     Dosage: ALL 2 WEEKS (Q 14 DAYS)
     Route: 042
     Dates: start: 20230920, end: 20240523
  3. CARBOPLATIN [Suspect]
     Active Substance: CARBOPLATIN
     Indication: Non-small cell lung cancer
     Dosage: FREQUENCY: ONLY 2 TIMES
     Route: 042
     Dates: start: 20230920, end: 20231101
  4. PACLITAXEL [Suspect]
     Active Substance: PACLITAXEL
     Indication: Non-small cell lung cancer
     Dates: start: 20230920
  5. CHOLECALCIFEROL [Concomitant]
     Active Substance: CHOLECALCIFEROL
     Indication: Product used for unknown indication

REACTIONS (10)
  - Amaurosis fugax [Recovered/Resolved]
  - Autoimmune thyroiditis [Not Recovered/Not Resolved]
  - Off label use [Unknown]
  - Hyperthyroidism [Unknown]
  - Lymphocytic hypophysitis [Recovered/Resolved]
  - Androgen deficiency [Unknown]
  - Autoimmune hepatitis [Recovered/Resolved]
  - Autoimmune cholangitis [Unknown]
  - Immunoglobulin G4 related disease [Unknown]
  - Hypothyroidism [Not Recovered/Not Resolved]

NARRATIVE: CASE EVENT DATE: 20240125
